FAERS Safety Report 8472740-9 (Version None)
Quarter: 2012Q2

REPORT INFORMATION
  Report Type: 
  Country: None (occurrence: None)
  Receive Date: 20120627
  Receipt Date: 20120615
  Transmission Date: 20120825
  Serious: Yes (Other)
  Sender: FDA-Public Use
  Company Number: JP-VERTEX PHARMACEUTICALS INC.-AE-2012-009096

PATIENT
  Age: 61 Year
  Sex: Male

DRUGS (5)
  1. TELAVIC (TELAPREVIR) [Suspect]
     Indication: HEPATITIS C
     Route: 048
     Dates: start: 20120424
  2. RIBAVIRIN [Concomitant]
     Route: 048
     Dates: start: 20120530
  3. RIBAVIRIN [Concomitant]
     Route: 048
     Dates: start: 20120516, end: 20120529
  4. RIBAVIRIN [Concomitant]
     Route: 048
     Dates: start: 20120424, end: 20120515
  5. PEGINTERFERON ALFA-2B [Concomitant]
     Route: 058
     Dates: start: 20120424

REACTIONS (1)
  - DRUG ERUPTION [None]
